FAERS Safety Report 13885549 (Version 2)
Quarter: 2017Q3

REPORT INFORMATION
  Report Type: Spontaneous
  Country: US (occurrence: US)
  Receive Date: 20170821
  Receipt Date: 20170823
  Transmission Date: 20171127
  Serious: No
  Sender: FDA-Public Use
  Company Number: US-PFIZER INC-2017354593

PATIENT
  Age: 54 Year
  Sex: Female

DRUGS (21)
  1. CELEBREX [Suspect]
     Active Substance: CELECOXIB
     Dosage: 200 MG, 1X/DAY
     Route: 048
  2. MEDROL [Suspect]
     Active Substance: METHYLPREDNISOLONE
     Dosage: 8 MG, UNK
     Route: 048
  3. DIAZEPAM. [Concomitant]
     Active Substance: DIAZEPAM
     Dosage: 5 MG, AS NEEDED, (TWICE A DAY)
     Route: 048
  4. MEDROL [Suspect]
     Active Substance: METHYLPREDNISOLONE
     Dosage: 12 MG, DAILY, (2 TABLET WITH FOOD OR MILK IN THE MORNING, 1 IN PM )
     Route: 048
  5. TIROSINT [Concomitant]
     Active Substance: LEVOTHYROXINE SODIUM
     Dosage: UNK
  6. ANORO ELLIPTA [Concomitant]
     Active Substance: UMECLIDINIUM BROMIDE\VILANTEROL TRIFENATATE
     Dosage: 1 DF, 1X/DAY, [(UMECLIDINIUM BROMIDE: 62.5 MCG)/(VILANTEROL TRIFENATATE: 25 MCG)]
     Route: 055
  7. POTASSIUM CITRATE. [Concomitant]
     Active Substance: POTASSIUM CITRATE
     Dosage: 10 MEQ, 3X/DAY, (1 TABLET WITH MEALS)
     Route: 048
  8. VITAMIN D [Concomitant]
     Active Substance: CHOLECALCIFEROL
     Dosage: 50000 UNIT CAPSULE 1 CAPSULE ORALLY
     Route: 048
  9. DEXAMETHASONE. [Concomitant]
     Active Substance: DEXAMETHASONE
     Dosage: 1 MG, 2X/DAY
     Route: 048
  10. POTASSIUM CHLORIDE. [Suspect]
     Active Substance: POTASSIUM CHLORIDE
     Dosage: 20 MEQ, DAILY
     Route: 048
  11. FOLIC ACID. [Concomitant]
     Active Substance: FOLIC ACID
     Dosage: 1 MG, 1X/DAY
     Route: 048
  12. MEDROL [Suspect]
     Active Substance: METHYLPREDNISOLONE
     Dosage: 4 MG, 2X/DAY
     Route: 048
  13. BEVESPI AEROSPHERE [Concomitant]
     Active Substance: FORMOTEROL FUMARATE\GLYCOPYRROLATE
     Dosage: 2 DF, 2X/DAY, [(FORMOTEROL FUMARATE: 4.8 MCG)/(GLYCOPYRRONIUM BROMIDE: 9MCG)]
     Route: 055
  14. PREDNISONE. [Concomitant]
     Active Substance: PREDNISONE
     Dosage: 5 MG, 1X/DAY
     Route: 048
  15. POTASSIUM CHLORIDE. [Suspect]
     Active Substance: POTASSIUM CHLORIDE
     Dosage: 30 MEQ, 1X/DAY, (1 TABLET WITH FOOD)
     Route: 048
  16. PLAQUENIL [Concomitant]
     Active Substance: HYDROXYCHLOROQUINE SULFATE
     Dosage: 200 MG, 1X/DAY, (1 TABLET WITH FOOD OR MILK)
     Route: 048
  17. NITROFURANTOIN MONOHYDRATE [Concomitant]
     Active Substance: NITROFURANTOIN MONOHYDRATE
     Dosage: 100 MG, 2X/DAY, (1 CAPSULE WITH FOOD ORALLY EVERY 12 HRS)
     Route: 048
  18. ULTRA-MEGA [Concomitant]
     Dosage: UNK
     Route: 048
  19. AMLODIPINE BESILATE [Suspect]
     Active Substance: AMLODIPINE BESYLATE
     Dosage: 10 MG, 1X/DAY
     Route: 048
  20. METHOTREXATE SODIUM. [Suspect]
     Active Substance: METHOTREXATE SODIUM
     Indication: RHEUMATOID ARTHRITIS
     Dosage: 2.5 MG, UNK
     Route: 048
  21. HELIUM/OXYGEN [Concomitant]
     Dosage: UNK, (20-80 % KIT)
     Route: 055

REACTIONS (17)
  - Fatigue [Unknown]
  - Arthralgia [Unknown]
  - Thirst [Unknown]
  - Weight increased [Unknown]
  - Visual impairment [Unknown]
  - Musculoskeletal stiffness [Unknown]
  - Dry eye [Unknown]
  - Hyperhidrosis [Unknown]
  - Alopecia [Unknown]
  - Dysphagia [Unknown]
  - Nasopharyngitis [Unknown]
  - Swelling [Unknown]
  - Joint swelling [Unknown]
  - Dry mouth [Unknown]
  - Hypertension [Unknown]
  - Night sweats [Unknown]
  - Synovial cyst [Unknown]
